FAERS Safety Report 20688339 (Version 1)
Quarter: 2022Q2

REPORT INFORMATION
  Report Type: Spontaneous
  Country: HR (occurrence: HR)
  Receive Date: 20220408
  Receipt Date: 20220408
  Transmission Date: 20220720
  Serious: Yes (Other)
  Sender: FDA-Public Use
  Company Number: None

PATIENT
  Age: 67 Year
  Sex: Female

DRUGS (3)
  1. CLONAZEPAM [Suspect]
     Active Substance: CLONAZEPAM
     Dosage: 25 MG, DAILY (50 X 0.5 MG (WHOLE BOTTLE))
     Route: 048
  2. LAMOTRIGINE [Suspect]
     Active Substance: LAMOTRIGINE
     Dosage: 3 G, DAILY (60 X 50 MG (2 BLISTERS))
     Route: 048
  3. SEROQUEL [Suspect]
     Active Substance: QUETIAPINE FUMARATE
     Dosage: 6 G, DAILY (20 X 300 MG (2 BLISTERS)), PROLONGED-RELEASE TABLET
     Route: 048

REACTIONS (4)
  - Intentional overdose [Unknown]
  - Suicide attempt [Unknown]
  - Dyspnoea [Unknown]
  - Coma [Unknown]

NARRATIVE: CASE EVENT DATE: 20220101
